FAERS Safety Report 5103086-4 (Version None)
Quarter: 2006Q3

REPORT INFORMATION
  Report Type: 
  Country: None (occurrence: None)
  Receive Date: 20060907
  Receipt Date: 20060905
  Transmission Date: 20061208
  Serious: Yes (Other)
  Sender: FDA-Public Use
  Company Number: DEWYE788828AUG06

PATIENT
  Age: 85 Year
  Sex: Female

DRUGS (2)
  1. VENLAFAXINE HCL [Suspect]
     Indication: DEPRESSION
     Dosage: 150 MG DAILY, ORAL
     Route: 048
     Dates: end: 20060803
  2. OXAZEPAM [Concomitant]

REACTIONS (4)
  - DELIRIUM [None]
  - DRUG WITHDRAWAL SYNDROME [None]
  - HALLUCINATION [None]
  - PARANOIA [None]
